FAERS Safety Report 7106334-4 (Version None)
Quarter: 2010Q4

REPORT INFORMATION
  Report Type: 
  Country: None (occurrence: None)
  Receive Date: 20101116
  Receipt Date: 20101109
  Transmission Date: 20110411
  Serious: Yes (Other)
  Sender: FDA-Public Use
  Company Number: BR-ROCHE-723530

PATIENT
  Sex: Female
  Weight: 57 kg

DRUGS (4)
  1. PEGINTERFERON ALFA-2A [Suspect]
     Indication: HEPATITIS C
     Route: 058
     Dates: start: 20070101, end: 20070101
  2. PEGINTERFERON ALFA-2A [Suspect]
     Dosage: ROUTE: SUBCUTANEOUS
     Route: 058
     Dates: start: 20100821
  3. RIBAVIRIN [Concomitant]
  4. ALPRAZOLAM [Concomitant]
     Indication: ANXIETY

REACTIONS (14)
  - DRUG INEFFECTIVE [None]
  - FATIGUE [None]
  - HAEMOGLOBIN DECREASED [None]
  - HEADACHE [None]
  - IMMUNODEFICIENCY [None]
  - MALAISE [None]
  - MASS [None]
  - MUSCULAR WEAKNESS [None]
  - MYALGIA [None]
  - PAIN [None]
  - PLATELET COUNT DECREASED [None]
  - PRURITUS [None]
  - SERUM FERRITIN INCREASED [None]
  - WHITE BLOOD CELL COUNT DECREASED [None]
